FAERS Safety Report 24574449 (Version 1)
Quarter: 2024Q4

REPORT INFORMATION
  Report Type: Other
  Country: IN (occurrence: IN)
  Receive Date: 20241104
  Receipt Date: 20241104
  Transmission Date: 20250115
  Serious: Yes (Other)
  Sender: OMNIVIUM PHARMACEUTICALS LLC
  Company Number: IN-Omnivium Pharmaceuticals LLC-2164345

PATIENT
  Age: 7 Decade
  Sex: Female

DRUGS (5)
  1. ISONIAZID [Suspect]
     Active Substance: ISONIAZID
     Indication: Tuberculosis
  2. RIFAMPIN [Concomitant]
     Active Substance: RIFAMPIN
  3. PYRAZINAMIDE [Concomitant]
     Active Substance: PYRAZINAMIDE
  4. ETHAMBUTOL [Concomitant]
     Active Substance: ETHAMBUTOL HYDROCHLORIDE
  5. PYRIDOXINE HYDROCHLORIDE [Concomitant]
     Active Substance: PYRIDOXINE HYDROCHLORIDE

REACTIONS (1)
  - Encephalitis [Recovered/Resolved]
